FAERS Safety Report 20292022 (Version 1)
Quarter: 2022Q1

REPORT INFORMATION
  Report Type: Spontaneous
  Country: DE (occurrence: DE)
  Receive Date: 20220104
  Receipt Date: 20220104
  Transmission Date: 20220423
  Serious: Yes (Hospitalization)
  Sender: FDA-Public Use
  Company Number: DE-ADRED-07464-01

PATIENT
  Age: 63 Year
  Sex: Female
  Weight: 64 kg

DRUGS (1)
  1. TENOFOVIR DISOPROXIL [Suspect]
     Active Substance: TENOFOVIR DISOPROXIL
     Indication: Product used for unknown indication
     Dosage: 245 MILLIGRAM (245 MG, 1-0-0-0, TABLETTEN)
     Route: 048

REACTIONS (5)
  - Anxiety [Unknown]
  - Vertigo [Unknown]
  - Epistaxis [Unknown]
  - Headache [Unknown]
  - Nausea [Unknown]
